FAERS Safety Report 5075891-4 (Version None)
Quarter: 2006Q3

REPORT INFORMATION
  Report Type: 
  Country: None (occurrence: None)
  Receive Date: 20060809
  Receipt Date: 20060104
  Transmission Date: 20061208
  Serious: No
  Sender: FDA-Public Use
  Company Number: US-AMGEN-KDL163940

PATIENT
  Age: 84 Year
  Sex: Male

DRUGS (3)
  1. PROCRIT [Suspect]
     Indication: ANAEMIA OF MALIGNANT DISEASE
     Route: 058
     Dates: start: 20040101
  2. COUMADIN [Concomitant]
  3. BENICAR [Concomitant]

REACTIONS (1)
  - HAEMOGLOBIN ABNORMAL [None]
